FAERS Safety Report 11175360 (Version 1)
Quarter: 2015Q2

REPORT INFORMATION
  Report Type: Spontaneous
  Country: US (occurrence: None)
  Receive Date: 20150515
  Receipt Date: 20150515
  Transmission Date: 20150821
  Serious: Yes (Hospitalization)
  Sender: FDA-Public Use
  Company Number: 120978

PATIENT
  Age: 25 Year
  Sex: Male
  Weight: 81.6 kg

DRUGS (2)
  1. PREDNISONE. [Concomitant]
     Active Substance: PREDNISONE
  2. CIMZIA [Suspect]
     Active Substance: CERTOLIZUMAB PEGOL
     Indication: CROHN^S DISEASE
     Dosage: EV 4 WEEKS
     Dates: start: 20121115, end: 2014

REACTIONS (2)
  - Abdominal pain [None]
  - Gastrointestinal inflammation [None]

NARRATIVE: CASE EVENT DATE: 201404
